FAERS Safety Report 6732227-8 (Version None)
Quarter: 2010Q2

REPORT INFORMATION
  Report Type: 
  Country: None (occurrence: None)
  Receive Date: 20100519
  Receipt Date: 20100510
  Transmission Date: 20101027
  Serious: Yes (Hospitalization)
  Sender: FDA-Public Use
  Company Number: A0858681A

PATIENT
  Age: 55 Year
  Sex: Female
  Weight: 190.9 kg

DRUGS (6)
  1. AVANDIA [Suspect]
     Dosage: 4MG PER DAY
     Route: 048
     Dates: start: 20020731, end: 20050601
  2. TENORMIN [Concomitant]
  3. LASIX [Concomitant]
  4. HUMULIN R [Concomitant]
  5. ATENOLOL [Concomitant]
  6. PREMARIN [Concomitant]

REACTIONS (3)
  - CARDIAC FAILURE CONGESTIVE [None]
  - CEREBROVASCULAR ACCIDENT [None]
  - TIBIA FRACTURE [None]
